FAERS Safety Report 9135358 (Version 1)
Quarter: 2013Q1

REPORT INFORMATION
  Report Type: Spontaneous
  Country: US (occurrence: US)
  Receive Date: 20130304
  Receipt Date: 20130304
  Transmission Date: 20140127
  Serious: Yes (Other)
  Sender: FDA-Public Use
  Company Number: PHEH2013US004796

PATIENT
  Sex: Male

DRUGS (10)
  1. TASIGNA [Suspect]
     Indication: CHRONIC MYELOID LEUKAEMIA
     Dosage: 400 MG, QD
     Route: 048
  2. ATENOLOL [Concomitant]
     Indication: BLOOD PRESSURE
  3. PANTOPRAZOLE [Concomitant]
     Dosage: 40 MG, UNK
  4. FUROSEMIDE [Concomitant]
     Dosage: 20 MG, UNK
  5. GUANFACINE [Concomitant]
     Dosage: 2 MG, UNK
  6. ASPIRIN [Concomitant]
     Dosage: 81 MG, UNK
  7. ANTIHISTAMINES [Concomitant]
  8. COLECALCIFEROL [Concomitant]
  9. CEPHALEXIN [Concomitant]
     Dosage: 500 MG, UNK
  10. CALCIUM CARBONATE [Concomitant]

REACTIONS (4)
  - Carpal tunnel syndrome [Unknown]
  - Grip strength decreased [Unknown]
  - Heart rate increased [Unknown]
  - Rash [Unknown]
